FAERS Safety Report 20130448 (Version 1)
Quarter: 2021Q4

REPORT INFORMATION
  Report Type: Spontaneous
  Country: IN (occurrence: IN)
  Receive Date: 20211130
  Receipt Date: 20211130
  Transmission Date: 20220304
  Serious: Yes (Hospitalization)
  Sender: FDA-Public Use
  Company Number: IN-MYLANLABS-2021M1088162

PATIENT
  Age: 61 Year
  Sex: Male

DRUGS (10)
  1. IMATINIB [Suspect]
     Active Substance: IMATINIB
     Indication: Graft versus host disease
     Dosage: UNK
     Route: 065
  2. IMATINIB [Suspect]
     Active Substance: IMATINIB
     Indication: Immunosuppressant drug therapy
  3. LOPINAVIR\RITONAVIR [Suspect]
     Active Substance: LOPINAVIR\RITONAVIR
     Indication: COVID-19
     Dosage: RECEIVED LOPINAVIR/RITONAVIR 400MG/100MG TWICE A DAY
     Route: 065
     Dates: start: 2020, end: 2020
  4. FLUTICASONE [Suspect]
     Active Substance: FLUTICASONE
     Indication: Restrictive pulmonary disease
     Dosage: UNK
  5. INTERFERON BETA-1B [Suspect]
     Active Substance: INTERFERON BETA-1B
     Indication: COVID-19
     Dosage: RECEIVED 8MU [SIC]
     Route: 065
     Dates: start: 2020, end: 2020
  6. TOCILIZUMAB [Suspect]
     Active Substance: TOCILIZUMAB
     Indication: COVID-19
     Dosage: 400 MILLIGRAM, RECEIVED A TOTAL TWO DOSES OF TOCILIZUMAB; FIRST DOSE ON DAY3 AND SECOND DOSE ON DAY5
     Route: 065
     Dates: start: 2020, end: 2020
  7. RIBAVIRIN [Concomitant]
     Active Substance: RIBAVIRIN
     Indication: COVID-19
     Dosage: 200 MILLIGRAM, QOD, RECEIVED RIBAVIRIN 200 AND 400MG ALTERNATE DAY
     Route: 065
     Dates: start: 2020, end: 2020
  8. RIBAVIRIN [Concomitant]
     Active Substance: RIBAVIRIN
     Dosage: 400 MILLIGRAM, QOD, RECEIVED RIBAVIRIN 200 AND 400MG ALTERNATE DAY
     Route: 065
     Dates: start: 2020, end: 2020
  9. AZITHROMYCIN [Concomitant]
     Active Substance: AZITHROMYCIN
     Indication: Restrictive pulmonary disease
     Dosage: UNK
     Route: 065
  10. MONTELUKAST [Concomitant]
     Active Substance: MONTELUKAST SODIUM
     Indication: Restrictive pulmonary disease
     Dosage: UNK
     Route: 065

REACTIONS (3)
  - COVID-19 [Recovered/Resolved]
  - Respiratory tract infection [Recovered/Resolved]
  - Off label use [Unknown]

NARRATIVE: CASE EVENT DATE: 20200101
